FAERS Safety Report 7409907-4 (Version None)
Quarter: 2011Q2

REPORT INFORMATION
  Report Type: 
  Country: None (occurrence: None)
  Receive Date: 20110412
  Receipt Date: 20110401
  Transmission Date: 20111010
  Serious: Yes (Hospitalization)
  Sender: FDA-Public Use
  Company Number: GB-ELI_LILLY_AND_COMPANY-GB201104000259

PATIENT
  Age: 55 Year
  Sex: Female

DRUGS (3)
  1. ANTIDEPRESSANTS [Concomitant]
  2. EXENATIDE [Suspect]
     Indication: DIABETES MELLITUS
     Dosage: 10 UG, BID
     Dates: start: 20091001
  3. LIPID MODIFYING AGENTS [Concomitant]

REACTIONS (1)
  - PNEUMONIA VIRAL [None]
